FAERS Safety Report 5150281-4 (Version None)
Quarter: 2006Q4

REPORT INFORMATION
  Report Type: 
  Country: None (occurrence: None)
  Receive Date: 20061110
  Receipt Date: 20061110
  Transmission Date: 20070319
  Serious: Yes (Other)
  Sender: FDA-Public Use
  Company Number: None

PATIENT
  Sex: Female
  Weight: 68.4932 kg

DRUGS (2)
  1. HYDROCODONE BITARTRATE [Suspect]
     Indication: BACK PAIN
     Dosage: 5/500 1-2 Q 6 HRS
     Dates: start: 20060619, end: 20060703
  2. HYDROCODONE BITARTRATE [Suspect]
     Indication: INTERVERTEBRAL DISC DEGENERATION
     Dosage: 5/500 1-2 Q 6 HRS
     Dates: start: 20060619, end: 20060703

REACTIONS (1)
  - NAUSEA [None]
